FAERS Safety Report 7233378-4 (Version None)
Quarter: 2011Q1

REPORT INFORMATION
  Report Type: 
  Country: None (occurrence: None)
  Receive Date: 20110119
  Receipt Date: 20110112
  Transmission Date: 20110831
  Serious: Yes (Death, Hospitalization)
  Sender: FDA-Public Use
  Company Number: US-ROCHE-752967

PATIENT
  Age: 44 Year
  Sex: Male

DRUGS (8)
  1. QUETIAPINE [Suspect]
     Route: 048
  2. PAROXETINE [Suspect]
     Route: 048
  3. OLANZAPINE [Suspect]
     Route: 048
  4. VALSARTAN [Concomitant]
     Route: 048
  5. OMEPRAZOLE [Concomitant]
     Route: 048
  6. GABAPENTIN [Suspect]
     Route: 048
  7. CLONAZEPAM [Suspect]
     Route: 048
  8. LEVOTHYROXINE [Concomitant]
     Route: 048

REACTIONS (2)
  - CARDIAC ARREST [None]
  - HYPONATRAEMIA [None]
